FAERS Safety Report 15452156 (Version 1)
Quarter: 2018Q4

REPORT INFORMATION
  Report Type: Report from Study
  Country: IT (occurrence: IT)
  Receive Date: 20181001
  Receipt Date: 20181001
  Transmission Date: 20190204
  Serious: Yes (Other)
  Sender: FDA-Public Use
  Company Number: IT-PFIZER INC-2018389771

PATIENT
  Age: 33 Year
  Sex: Male

DRUGS (2)
  1. XANAX [Suspect]
     Active Substance: ALPRAZOLAM
     Dosage: 50 DF, TOTAL
     Route: 048
     Dates: start: 20180827, end: 20180827
  2. BROMAZEPAM [Suspect]
     Active Substance: BROMAZEPAM
     Dosage: 40 ML, TOTAL
     Route: 048
     Dates: start: 20180827

REACTIONS (6)
  - Orthostatic hypotension [Recovering/Resolving]
  - Balance disorder [Recovering/Resolving]
  - Speech disorder [Recovering/Resolving]
  - Overdose [Recovering/Resolving]
  - Drug abuse [Recovering/Resolving]
  - Urinary incontinence [Recovering/Resolving]

NARRATIVE: CASE EVENT DATE: 20180827
